FAERS Safety Report 15127927 (Version 2)
Quarter: 2018Q3

REPORT INFORMATION
  Report Type: Spontaneous
  Country: PL (occurrence: PL)
  Receive Date: 20180711
  Receipt Date: 20180718
  Transmission Date: 20181010
  Serious: Yes (Other)
  Sender: FDA-Public Use
  Company Number: PL-OTSUKA-2018_018224

PATIENT
  Age: 40 Year
  Sex: Female

DRUGS (17)
  1. RISPERIDONE. [Suspect]
     Active Substance: RISPERIDONE
     Dosage: 6 MG, QD
     Route: 048
     Dates: end: 201704
  2. SEDAM [Suspect]
     Active Substance: BROMAZEPAM
     Dosage: 3 MG, QD
     Route: 065
     Dates: start: 201704, end: 2017
  3. AKINETON [Concomitant]
     Active Substance: BIPERIDEN HYDROCHLORIDE
     Indication: PRODUCT USED FOR UNKNOWN INDICATION
     Dosage: 2 DF, UNK
     Route: 065
     Dates: start: 201210
  4. LACTULOSUM [Concomitant]
     Indication: PRODUCT USED FOR UNKNOWN INDICATION
     Dosage: 2 DF, QD (2 GIFERS IN THE MORNING)
     Route: 065
     Dates: start: 201210
  5. ARIPIPRAZOLE. [Suspect]
     Active Substance: ARIPIPRAZOLE
     Indication: SCHIZOPHRENIA
     Dosage: 22.5 MG, QD
     Route: 065
     Dates: start: 201210
  6. SEDAM [Suspect]
     Active Substance: BROMAZEPAM
     Indication: INSOMNIA
     Dosage: 6 MG, QD
     Route: 065
     Dates: end: 201704
  7. QUETIAPINE XR [Suspect]
     Active Substance: QUETIAPINE
     Indication: SCHIZOPHRENIA
     Dosage: 300 MG, QD
     Route: 065
     Dates: start: 201704, end: 2017
  8. GUTRON [Concomitant]
     Active Substance: MIDODRINE
     Indication: PRODUCT USED FOR UNKNOWN INDICATION
     Dosage: 5 MG, QD
     Route: 065
     Dates: start: 201210
  9. VALPROIC ACID. [Suspect]
     Active Substance: VALPROIC ACID
     Indication: SCHIZOPHRENIA
     Dosage: 1000 MG, UNK (2X500MG)
     Route: 065
     Dates: start: 201210
  10. RISPERIDONE. [Suspect]
     Active Substance: RISPERIDONE
     Dosage: UNK (FOR MIN. 3?4 WEEKS)
     Route: 048
     Dates: start: 201706, end: 2017
  11. QUETIAPINE. [Suspect]
     Active Substance: QUETIAPINE
     Dosage: UNK
     Route: 065
     Dates: start: 201706, end: 2017
  12. SEDAM [Suspect]
     Active Substance: BROMAZEPAM
     Dosage: 1.5 MG, UNK (AS NECESSARY) AT NIGHT TEMPORARILY
     Route: 065
     Dates: start: 2017
  13. QUETIAPINE XR [Suspect]
     Active Substance: QUETIAPINE
     Dosage: 400 MG, QD (0?0?1 START DATE: BETWEEN OCT AND DEC?2017)
     Route: 065
     Dates: start: 2017
  14. RISPERIDONE. [Suspect]
     Active Substance: RISPERIDONE
     Indication: SCHIZOPHRENIA
     Dosage: 3 MG, QD
     Route: 048
     Dates: start: 201704, end: 201706
  15. DIAZEPAM. [Suspect]
     Active Substance: DIAZEPAM
     Indication: SCHIZOPHRENIA
     Dosage: 5 MG, QD (AS NEEDED)
     Route: 065
     Dates: start: 201210
  16. QUETIAPINE. [Suspect]
     Active Substance: QUETIAPINE
     Indication: SCHIZOPHRENIA
     Dosage: 100 MG, UNK
     Route: 065
     Dates: start: 2017
  17. RISPOLEPT CONSTA [Suspect]
     Active Substance: RISPERIDONE
     Indication: SCHIZOPHRENIA
     Dosage: 50 MG, UNK (2 WEEK)
     Route: 030
     Dates: start: 201706

REACTIONS (8)
  - Anxiety [Recovered/Resolved]
  - Inappropriate schedule of drug administration [Unknown]
  - Persecutory delusion [Recovered/Resolved]
  - Disturbance in attention [Recovered/Resolved]
  - Treatment noncompliance [Unknown]
  - Memory impairment [Recovered/Resolved]
  - Suicidal ideation [Recovered/Resolved]
  - Incorrect dose administered [Unknown]

NARRATIVE: CASE EVENT DATE: 201210
